FAERS Safety Report 18100642 (Version 3)
Quarter: 2020Q3

REPORT INFORMATION
  Report Type: Spontaneous
  Country: JP (occurrence: JP)
  Receive Date: 20200731
  Receipt Date: 20200828
  Transmission Date: 20201103
  Serious: Yes (Death, Life-Threatening, Other)
  Sender: FDA-Public Use
  Company Number: JP-BRISTOL-MYERS SQUIBB COMPANY-BMS-2020-049077

PATIENT
  Age: 83 Year
  Sex: Female
  Weight: 32 kg

DRUGS (11)
  1. EDIROL [Concomitant]
     Active Substance: ELDECALCITOL
     Indication: RHEUMATOID ARTHRITIS
     Dosage: 0.75 MICROGRAM, QD
     Route: 048
     Dates: start: 20070901, end: 20200526
  2. FERRUM [FERROUS FUMARATE] [Concomitant]
     Indication: RHEUMATOID ARTHRITIS
     Dosage: 100 MILLIGRAM, QD
     Route: 048
     Dates: start: 20140227, end: 20200526
  3. CILOSTAZOL. [Concomitant]
     Active Substance: CILOSTAZOL
     Indication: RHEUMATOID ARTHRITIS
     Dosage: 100 MILLIGRAM, QD
     Route: 048
     Dates: start: 20171031, end: 20200526
  4. AMLODIPINE [AMLODIPINE BESILATE] [Concomitant]
     Active Substance: AMLODIPINE BESYLATE
     Indication: RHEUMATOID ARTHRITIS
     Dosage: 5 MILLIGRAM, QD
     Route: 048
     Dates: start: 20130828, end: 20200526
  5. LOXOPROFEN [LOXOPROFEN SODIUM] [Concomitant]
     Active Substance: LOXOPROFEN SODIUM
     Indication: RHEUMATOID ARTHRITIS
     Dosage: 120 MILLIGRAM, QD
     Route: 048
     Dates: start: 20000613, end: 20200526
  6. ZOLPIDEM TARTRATE. [Concomitant]
     Active Substance: ZOLPIDEM TARTRATE
     Indication: RHEUMATOID ARTHRITIS
     Dosage: 5 MILLIGRAM, QD
     Route: 048
     Dates: start: 20180626, end: 20200526
  7. ORENCIA [Suspect]
     Active Substance: ABATACEPT
     Indication: RHEUMATOID ARTHRITIS
     Dosage: 125 MILLIGRAM, Q2WK
     Route: 058
     Dates: start: 20160726, end: 20200526
  8. METHOTREXATE. [Suspect]
     Active Substance: METHOTREXATE
     Indication: RHEUMATOID ARTHRITIS
     Dosage: 8 MILLIGRAM, QWK
     Route: 048
     Dates: start: 20000613, end: 20200526
  9. ZITHROMAC [Concomitant]
     Active Substance: AZITHROMYCIN DIHYDRATE
     Indication: RHEUMATOID ARTHRITIS
     Dosage: 2.0 GRAM
     Route: 048
     Dates: start: 20200526, end: 20200526
  10. YODEL [Concomitant]
     Active Substance: SENNA LEAF
     Indication: RHEUMATOID ARTHRITIS
     Dosage: 2 TAB, QD
     Route: 048
     Dates: start: 20170110, end: 20200526
  11. FOLIAMIN [Concomitant]
     Active Substance: FOLIC ACID
     Indication: RHEUMATOID ARTHRITIS
     Dosage: 5 MILLIGRAM, QWK
     Route: 048
     Dates: start: 20000613, end: 20200526

REACTIONS (3)
  - Dehydration [Fatal]
  - Sepsis [Unknown]
  - Pancytopenia [Fatal]

NARRATIVE: CASE EVENT DATE: 20200526
